FAERS Safety Report 4618734-2 (Version None)
Quarter: 2005Q1

REPORT INFORMATION
  Report Type: 
  Country: None (occurrence: None)
  Receive Date: 20050323
  Receipt Date: 20050303
  Transmission Date: 20050727
  Serious: Yes (Death, Other)
  Sender: FDA-Public Use
  Company Number: US_0503113885

PATIENT
  Age: 70 Year
  Sex: Female

DRUGS (1)
  1. HUMULIN-HUMAN INSULIN(RDNA) UNKNOWN FORMULATION (HU [Suspect]

REACTIONS (1)
  - CARDIAC ARREST [None]
